FAERS Safety Report 6327957-6 (Version None)
Quarter: 2009Q3

REPORT INFORMATION
  Report Type: 
  Country: None (occurrence: None)
  Receive Date: 20090825
  Receipt Date: 20080730
  Transmission Date: 20100115
  Serious: No
  Sender: FDA-Public Use
  Company Number: US-ABBOTT-08P-163-0451876-00

PATIENT
  Sex: Female
  Weight: 61.29 kg

DRUGS (5)
  1. SYNTHROID [Suspect]
     Indication: HYPOTHYROIDISM
     Route: 048
     Dates: start: 20071101, end: 20080511
  2. SYNTHROID [Suspect]
     Route: 048
     Dates: start: 20080512
  3. FEXOFENADINE [Concomitant]
     Indication: HYPERSENSITIVITY
     Route: 048
  4. NASAL SPRAY [Concomitant]
     Indication: HYPERSENSITIVITY
     Route: 045
  5. INHALER [Concomitant]
     Indication: ASTHMA
     Route: 055

REACTIONS (9)
  - AGITATION [None]
  - BLOOD PRESSURE DIASTOLIC INCREASED [None]
  - FATIGUE [None]
  - FEELING ABNORMAL [None]
  - HEART RATE INCREASED [None]
  - HYPERTENSION [None]
  - PSYCHOMOTOR HYPERACTIVITY [None]
  - RASH [None]
  - THYROID FUNCTION TEST ABNORMAL [None]
